FAERS Safety Report 25406137 (Version 2)
Quarter: 2025Q3

REPORT INFORMATION
  Report Type: Spontaneous
  Country: EU (occurrence: EU)
  Receive Date: 20250606
  Receipt Date: 20250714
  Transmission Date: 20251020
  Serious: No
  Sender: AMERICAN REGENT
  Company Number: EU-AMERICAN REGENT INC-2025002299

PATIENT
  Sex: Female

DRUGS (1)
  1. FERINJECT [Suspect]
     Active Substance: FERRIC CARBOXYMALTOSE
     Indication: Product used for unknown indication
     Route: 042
     Dates: start: 20250423

REACTIONS (2)
  - Skin fissures [Recovering/Resolving]
  - Nail discolouration [Recovering/Resolving]

NARRATIVE: CASE EVENT DATE: 20250501
